FAERS Safety Report 11139928 (Version 1)
Quarter: 2015Q2

REPORT INFORMATION
  Report Type: Spontaneous
  Country: US (occurrence: US)
  Receive Date: 20150527
  Receipt Date: 20150527
  Transmission Date: 20150821
  Serious: No
  Sender: FDA-Public Use
  Company Number: US-PFIZER INC-2015173960

PATIENT
  Age: 65 Year
  Sex: Male

DRUGS (1)
  1. SUTENT [Suspect]
     Active Substance: SUNITINIB MALATE
     Indication: METASTATIC RENAL CELL CARCINOMA
     Dosage: 50 MG,(28 DAYS ON/14 DAYS OFF)
     Dates: start: 20140101

REACTIONS (6)
  - Gastrooesophageal reflux disease [Unknown]
  - Oesophageal pain [Unknown]
  - Fatigue [Unknown]
  - Malaise [Unknown]
  - Chills [Unknown]
  - Tremor [Unknown]
